FAERS Safety Report 18060825 (Version 2)
Quarter: 2020Q3

REPORT INFORMATION
  Report Type: Report from Study
  Country: BE (occurrence: BE)
  Receive Date: 20200723
  Receipt Date: 20200902
  Transmission Date: 20201103
  Serious: Yes (Hospitalization)
  Sender: FDA-Public Use
  Company Number: BE-TEVA-2020-BE-1804917

PATIENT
  Age: 61 Year
  Sex: Male
  Weight: 102 kg

DRUGS (12)
  1. IRINOTECAN [Suspect]
     Active Substance: IRINOTECAN
     Indication: COLORECTAL CANCER METASTATIC
     Dosage: 399 MILLIGRAM DAILY;
     Route: 042
     Dates: start: 20180321, end: 20180417
  2. IRINOTECAN [Suspect]
     Active Substance: IRINOTECAN
     Route: 042
     Dates: start: 20180508
  3. FLUOROURACIL. [Suspect]
     Active Substance: FLUOROURACIL
     Indication: COLORECTAL CANCER METASTATIC
     Dosage: 885.6 MILLIGRAM DAILY;
     Route: 040
     Dates: start: 20180321, end: 20180417
  4. FLUOROURACIL. [Suspect]
     Active Substance: FLUOROURACIL
     Dosage: 885.6 MILLIGRAM DAILY;
     Route: 040
     Dates: start: 20180508
  5. MICARDIS PLUS [Concomitant]
     Active Substance: HYDROCHLOROTHIAZIDE\TELMISARTAN
     Route: 065
     Dates: start: 20171127
  6. EMCONCOR [Concomitant]
     Active Substance: BISOPROLOL FUMARATE
     Dates: start: 20171121
  7. MOXON [Concomitant]
     Active Substance: MOXONIDINE
     Dates: start: 20171129
  8. FLUOROURACIL. [Suspect]
     Active Substance: FLUOROURACIL
     Dosage: 5313.4 MILLIGRAM DAILY;
     Route: 042
     Dates: start: 20180508
  9. LEUCOVORIN. [Suspect]
     Active Substance: LEUCOVORIN
     Indication: COLORECTAL CANCER METASTATIC
     Dosage: 443 MILLIGRAM DAILY;
     Route: 042
     Dates: start: 20180321, end: 20180417
  10. LEUCOVORIN. [Suspect]
     Active Substance: LEUCOVORIN
     Route: 042
     Dates: start: 20180508
  11. FLUOROURACIL. [Suspect]
     Active Substance: FLUOROURACIL
     Dosage: 5313.4 MILLIGRAM DAILY;
     Route: 040
     Dates: start: 20180321, end: 20180419
  12. LERCANIDIPIN SANDOZ [Concomitant]
     Active Substance: LERCANIDIPINE HYDROCHLORIDE
     Dates: start: 20171121

REACTIONS (1)
  - Pyelonephritis [Recovered/Resolved]

NARRATIVE: CASE EVENT DATE: 20180503
